FAERS Safety Report 18244849 (Version 1)
Quarter: 2020Q3

REPORT INFORMATION
  Report Type: Spontaneous
  Country: US (occurrence: US)
  Receive Date: 20200908
  Receipt Date: 20200908
  Transmission Date: 20201103
  Serious: Yes (Death, Disabling, Other)
  Sender: FDA-Public Use
  Company Number: US-PURDUE-USA-2020-0165071

PATIENT
  Sex: Male

DRUGS (1)
  1. OXYCONTIN [Suspect]
     Active Substance: OXYCODONE HYDROCHLORIDE
     Indication: PAIN
     Route: 048

REACTIONS (12)
  - Pain [Not Recovered/Not Resolved]
  - Joint swelling [Unknown]
  - Rheumatoid arthritis [Unknown]
  - Disability [Unknown]
  - Dependence [Unknown]
  - Gait disturbance [Unknown]
  - Peripheral swelling [Unknown]
  - Joint injury [Unknown]
  - Toxicity to various agents [Fatal]
  - Psoriatic arthropathy [Unknown]
  - Overdose [Unknown]
  - Insomnia [Unknown]

NARRATIVE: CASE EVENT DATE: 20180519
